FAERS Safety Report 6891631-8 (Version None)
Quarter: 2010Q3

REPORT INFORMATION
  Report Type: 
  Country: None (occurrence: None)
  Receive Date: 20100731
  Receipt Date: 20070815
  Transmission Date: 20110219
  Serious: No
  Sender: FDA-Public Use
  Company Number: US-PFIZER INC-2007072426

PATIENT
  Age: 8 Month
  Sex: Male

DRUGS (1)
  1. CORTEF [Suspect]
     Indication: ECZEMA
     Dosage: 0.5% CREAM
     Route: 061

REACTIONS (2)
  - INTENTIONAL DRUG MISUSE [None]
  - SKIN IRRITATION [None]
